FAERS Safety Report 9472346 (Version 3)
Quarter: 2013Q4

REPORT INFORMATION
  Report Type: Report from Study
  Country: US (occurrence: US)
  Receive Date: 20130823
  Receipt Date: 20131111
  Transmission Date: 20140711
  Serious: Yes (Hospitalization)
  Sender: FDA-Public Use
  Company Number: US-JNJFOC-20130807040

PATIENT
  Age: 69 Year
  Sex: Female
  Weight: 83.92 kg

DRUGS (9)
  1. STELARA [Suspect]
     Indication: PSORIASIS
     Route: 058
     Dates: start: 200911
  2. METHOTREXATE [Suspect]
     Indication: PRODUCT USED FOR UNKNOWN INDICATION
     Route: 065
  3. SYNTHROID [Concomitant]
     Route: 048
  4. PROZAC [Concomitant]
     Route: 048
     Dates: start: 1995
  5. NEURONTIN [Concomitant]
     Route: 048
     Dates: start: 2006
  6. LISINOPRIL [Concomitant]
     Route: 048
     Dates: start: 2005
  7. PRILOSEC [Concomitant]
     Route: 048
     Dates: start: 2005
  8. ASA [Concomitant]
     Route: 048
     Dates: start: 1994
  9. METFORMIN [Concomitant]
     Route: 048
     Dates: start: 2008

REACTIONS (1)
  - Pneumonia [Recovered/Resolved]
